FAERS Safety Report 4743473-7 (Version None)
Quarter: 2005Q3

REPORT INFORMATION
  Report Type: 
  Country: None (occurrence: None)
  Receive Date: 20050809
  Receipt Date: 20050725
  Transmission Date: 20060218
  Serious: Yes (Hospitalization)
  Sender: FDA-Public Use
  Company Number: 2005EU000757

PATIENT
  Age: 50 Year
  Sex: Male

DRUGS (15)
  1. FK506 (TACROLIMUS CAPSULES) CAPSULE [Suspect]
     Indication: LIVER TRANSPLANT
     Dosage: 3.00 MG, UID/QD, ORAL; SEE IMAGE
     Route: 048
     Dates: start: 20050315, end: 20050402
  2. FK506 (TACROLIMUS CAPSULES) CAPSULE [Suspect]
     Indication: LIVER TRANSPLANT
     Dosage: 3.00 MG, UID/QD, ORAL; SEE IMAGE
     Route: 048
     Dates: start: 20050403, end: 20050403
  3. FK506 (TACROLIMUS CAPSULES) CAPSULE [Suspect]
     Indication: LIVER TRANSPLANT
     Dosage: 3.00 MG, UID/QD, ORAL; SEE IMAGE
     Route: 048
     Dates: start: 20050404, end: 20050412
  4. FK506 (TACROLIMUS CAPSULES) CAPSULE [Suspect]
     Indication: LIVER TRANSPLANT
     Dosage: 3.00 MG, UID/QD, ORAL; SEE IMAGE
     Route: 048
     Dates: start: 20050413, end: 20050413
  5. FK506 (TACROLIMUS CAPSULES) CAPSULE [Suspect]
     Indication: LIVER TRANSPLANT
     Dosage: 3.00 MG, UID/QD, ORAL; SEE IMAGE
     Route: 048
     Dates: start: 20050414, end: 20050419
  6. FK506 (TACROLIMUS CAPSULES) CAPSULE [Suspect]
     Indication: LIVER TRANSPLANT
     Dosage: 3.00 MG, UID/QD, ORAL; SEE IMAGE
     Route: 048
     Dates: start: 20050421
  7. MYCOPHENOLATE MOFETIL (MYCOPHENOLATE MOFETIL) [Suspect]
     Indication: LIVER TRANSPLANT
     Dosage: 1000.00 MG, BID, IV NOS; SEE IMAGE
     Route: 042
     Dates: start: 20050315, end: 20050320
  8. MYCOPHENOLATE MOFETIL (MYCOPHENOLATE MOFETIL) [Suspect]
     Indication: LIVER TRANSPLANT
     Dosage: 1000.00 MG, BID, IV NOS; SEE IMAGE
     Route: 042
     Dates: start: 20050321
  9. METHYLPREDNISOLONE [Suspect]
     Indication: LIVER TRANSPLANT
     Dosage: 500.00 MG, UID/QD
     Dates: start: 20050315, end: 20050315
  10. PREDNISONE [Suspect]
     Indication: LIVER TRANSPLANT
     Dosage: 15.00 MG, UID/QD
     Dates: start: 20050316
  11. ACYCLOVIR [Concomitant]
  12. METOPROLOL SUCCINATE [Concomitant]
  13. NADROPARIN (NADROPARIN) [Concomitant]
  14. PANTOPRAZOLE SODIUM [Concomitant]
  15. SULFAMETHOXAZOLE + TRIMETHOPRIM [Concomitant]

REACTIONS (11)
  - ATRIOVENTRICULAR BLOCK [None]
  - BILIARY ISCHAEMIA [None]
  - BLOOD PRESSURE INCREASED [None]
  - CHOLESTASIS [None]
  - CONVULSION [None]
  - FALL [None]
  - HEPATITIS C [None]
  - LIVER TRANSPLANT REJECTION [None]
  - LUMBAR VERTEBRAL FRACTURE [None]
  - MOBILITY DECREASED [None]
  - SYNCOPE [None]
